FAERS Safety Report 23576729 (Version 3)
Quarter: 2025Q1

REPORT INFORMATION
  Report Type: Report from Study
  Country: DE (occurrence: DE)
  Receive Date: 20240228
  Receipt Date: 20250117
  Transmission Date: 20250408
  Serious: Yes (Hospitalization)
  Sender: PFIZER
  Company Number: DE-ROCHE-3414126

PATIENT
  Age: 56 Year
  Sex: Female
  Weight: 70 kg

DRUGS (16)
  1. TRASTUZUMAB [Suspect]
     Active Substance: TRASTUZUMAB
     Indication: Breast cancer
     Dates: start: 20230804
  2. TRASTUZUMAB [Suspect]
     Active Substance: TRASTUZUMAB
     Dates: start: 20230804
  3. TRASTUZUMAB [Suspect]
     Active Substance: TRASTUZUMAB
     Dates: start: 20230823
  4. TRASTUZUMAB [Suspect]
     Active Substance: TRASTUZUMAB
     Dates: start: 20230913, end: 20231121
  5. CARBOPLATIN [Suspect]
     Active Substance: CARBOPLATIN
     Indication: Breast cancer
     Dates: start: 20230804
  6. CARBOPLATIN [Suspect]
     Active Substance: CARBOPLATIN
     Dates: start: 20230804
  7. CARBOPLATIN [Suspect]
     Active Substance: CARBOPLATIN
     Dates: start: 20230913, end: 20231121
  8. PACLITAXEL [Suspect]
     Active Substance: PACLITAXEL
     Indication: Breast cancer
     Dates: start: 20230804
  9. PACLITAXEL [Suspect]
     Active Substance: PACLITAXEL
     Dates: start: 20231031, end: 20231205
  10. PERJETA [Suspect]
     Active Substance: PERTUZUMAB
     Indication: Breast cancer
     Dates: start: 20230804
  11. PERJETA [Suspect]
     Active Substance: PERTUZUMAB
     Dates: start: 20230804
  12. PERJETA [Suspect]
     Active Substance: PERTUZUMAB
     Dates: start: 20230823
  13. PERJETA [Suspect]
     Active Substance: PERTUZUMAB
     Dates: start: 20231024, end: 20231121
  14. VAGISAN [DL- LACTIC ACID;SODIUM LACTATE] [Concomitant]
     Dates: start: 202309, end: 202312
  15. ALDIAMED MOUTH GEL [Concomitant]
     Route: 048
     Dates: start: 202309
  16. LOPERAMIDE [Concomitant]
     Active Substance: LOPERAMIDE
     Route: 048
     Dates: start: 202311, end: 202407

REACTIONS (4)
  - Vertigo [Recovered/Resolved]
  - Diarrhoea [Recovered/Resolved]
  - Fatigue [Recovered/Resolved]
  - Nausea [Recovered/Resolved]

NARRATIVE: CASE EVENT DATE: 20230913
